FAERS Safety Report 22954282 (Version 4)
Quarter: 2024Q1

REPORT INFORMATION
  Report Type: Spontaneous
  Country: US (occurrence: US)
  Receive Date: 20230918
  Receipt Date: 20240104
  Transmission Date: 20240410
  Serious: Yes (Hospitalization)
  Sender: FDA-Public Use
  Company Number: US-PFIZER INC-202300296048

PATIENT
  Age: 62 Year
  Sex: Female

DRUGS (2)
  1. XELJANZ [Suspect]
     Active Substance: TOFACITINIB CITRATE
     Indication: Rheumatoid arthritis
     Dosage: 5 MG, BID (TWICE A DAY)
     Route: 048
  2. XELJANZ [Suspect]
     Active Substance: TOFACITINIB CITRATE
     Dosage: 5 MG, QD (ONCE A DAY)
     Route: 048

REACTIONS (7)
  - Drug intolerance [Unknown]
  - Off label use [Unknown]
  - Laryngitis [Unknown]
  - Movement disorder [Unknown]
  - Anxiety [Recovering/Resolving]
  - Cough [Unknown]
  - Bruxism [Unknown]
